FAERS Safety Report 17191694 (Version 1)
Quarter: 2019Q4

REPORT INFORMATION
  Report Type: Spontaneous
  Country: GR (occurrence: GR)
  Receive Date: 20191223
  Receipt Date: 20191223
  Transmission Date: 20200122
  Serious: Yes (Other)
  Sender: FDA-Public Use
  Company Number: GR-PFM-2019-15520

PATIENT

DRUGS (9)
  1. GEMCITABINE. [Suspect]
     Active Substance: GEMCITABINE
     Indication: DIFFUSE LARGE B-CELL LYMPHOMA
     Dosage: 3 CYCLES
     Route: 065
     Dates: start: 20191029
  2. DOXORUBICIN [Suspect]
     Active Substance: DOXORUBICIN
     Indication: DIFFUSE LARGE B-CELL LYMPHOMA
     Dosage: 6 CYCLES
     Route: 065
     Dates: start: 20190527, end: 20190910
  3. CYCLOPHOSPHAMIDE. [Suspect]
     Active Substance: CYCLOPHOSPHAMIDE
     Indication: DIFFUSE LARGE B-CELL LYMPHOMA
     Dosage: 6 CYCLES
     Route: 065
     Dates: start: 20190527, end: 20190910
  4. VINORELBINE [Suspect]
     Active Substance: VINORELBINE TARTRATE
     Indication: DIFFUSE LARGE B-CELL LYMPHOMA
     Dosage: 3 CYCLES
     Route: 065
     Dates: start: 20191029
  5. PREDNISOLONE. [Suspect]
     Active Substance: PREDNISOLONE
     Indication: DIFFUSE LARGE B-CELL LYMPHOMA
     Dosage: 6 CYCLES
     Route: 065
     Dates: start: 20190527, end: 20190910
  6. VINCRISTINE [Suspect]
     Active Substance: VINCRISTINE
     Indication: DIFFUSE LARGE B-CELL LYMPHOMA
     Dosage: 6 CYCLES
     Route: 065
     Dates: start: 20190527, end: 20190910
  7. RITUXIMAB. [Suspect]
     Active Substance: RITUXIMAB
     Dosage: 3 CYCLES
     Route: 065
     Dates: start: 20191029
  8. RITUXIMAB. [Suspect]
     Active Substance: RITUXIMAB
     Indication: DIFFUSE LARGE B-CELL LYMPHOMA
     Dosage: 6 CYCLES
     Route: 065
     Dates: start: 20190527, end: 20190910
  9. VINORELBINE [Suspect]
     Active Substance: VINORELBINE TARTRATE
     Indication: OFF LABEL USE

REACTIONS (4)
  - Hypersplenism [Unknown]
  - Off label use [Unknown]
  - Anaemia [Unknown]
  - Product used for unknown indication [Unknown]
